FAERS Safety Report 11989416 (Version 6)
Quarter: 2016Q1

REPORT INFORMATION
  Report Type: Spontaneous
  Country: US (occurrence: US)
  Receive Date: 20160202
  Receipt Date: 20160309
  Transmission Date: 20160526
  Serious: Yes (Life-Threatening, Hospitalization, Other)
  Sender: FDA-Public Use
  Company Number: PHHY2015US171564

PATIENT
  Age: 56 Year
  Sex: Female

DRUGS (33)
  1. BACLOFEN INTRATHECAL [Suspect]
     Active Substance: BACLOFEN
     Dosage: 696.9 UG, QD
     Route: 037
  2. BACLOFEN. [Suspect]
     Active Substance: BACLOFEN
     Indication: PAIN IN EXTREMITY
     Dosage: 10 MG, Q4H
     Route: 048
  3. PARACETAMOL [Suspect]
     Active Substance: ACETAMINOPHEN
     Indication: PAIN
     Dosage: 2 DF, Q4H PRN
     Route: 048
  4. APO-FLUTICASONE [Suspect]
     Active Substance: FLUTICASONE PROPIONATE
     Indication: PRODUCT USED FOR UNKNOWN INDICATION
     Dosage: 50 UG, QD (IN BOTH NOSTRIL)
     Route: 055
  5. LYRICA [Suspect]
     Active Substance: PREGABALIN
     Indication: PRODUCT USED FOR UNKNOWN INDICATION
     Dosage: 50 MG, BID
     Route: 048
  6. RIVAROXABAN [Suspect]
     Active Substance: RIVAROXABAN
     Indication: PRODUCT USED FOR UNKNOWN INDICATION
     Dosage: 10 MG, QD
     Route: 048
  7. METOPROLOL. [Suspect]
     Active Substance: METOPROLOL
     Indication: PRODUCT USED FOR UNKNOWN INDICATION
     Dosage: 1 DF, TID (1 TABLET, TID)
     Route: 048
  8. PRIALT [Suspect]
     Active Substance: ZICONOTIDE ACETATE
     Dosage: 4.8 UG, QD (INCREASED 10 PERCENT)
     Route: 037
     Dates: start: 20151201
  9. FLONASE [Suspect]
     Active Substance: FLUTICASONE PROPIONATE
     Indication: PRODUCT USED FOR UNKNOWN INDICATION
     Dosage: 50 UG, BID (IN BOTH NOSTRIL)
     Route: 055
  10. MELOXICAM. [Suspect]
     Active Substance: MELOXICAM
     Indication: PRODUCT USED FOR UNKNOWN INDICATION
     Dosage: 15 MG, QD
     Route: 065
  11. HYDROCHLOROTHIAZIDE. [Suspect]
     Active Substance: HYDROCHLOROTHIAZIDE
     Indication: PRODUCT USED FOR UNKNOWN INDICATION
     Dosage: 25 MG, QD
     Route: 048
  12. POTASSIUM CHLORIDE. [Suspect]
     Active Substance: POTASSIUM CHLORIDE
     Indication: PRODUCT USED FOR UNKNOWN INDICATION
     Dosage: 20 MEQ, QD
     Route: 048
  13. CETIRIZINE [Suspect]
     Active Substance: CETIRIZINE HYDROCHLORIDE
     Indication: PRODUCT USED FOR UNKNOWN INDICATION
     Dosage: 10 MG, QD
     Route: 048
  14. PRIALT [Suspect]
     Active Substance: ZICONOTIDE ACETATE
     Dosage: 3.8 UG, QD (DECREASED 20 PERCENT)
     Route: 037
     Dates: start: 20151228
  15. LYRICA [Suspect]
     Active Substance: PREGABALIN
     Dosage: 50 MG, QD
     Route: 048
  16. BACLOFEN INTRATHECAL [Suspect]
     Active Substance: BACLOFEN
     Indication: MUSCLE SPASTICITY
     Dosage: 868 UG, QD
     Route: 037
  17. METOPROLOL. [Suspect]
     Active Substance: METOPROLOL
     Indication: PRODUCT USED FOR UNKNOWN INDICATION
     Dosage: 50 MG, BID
     Route: 048
  18. PRIALT [Suspect]
     Active Substance: ZICONOTIDE ACETATE
     Dosage: 4.397 UG, QD (INCREASED 10 PERCENT)
     Route: 037
     Dates: start: 20151006
  19. KLOR-CON M20 [Suspect]
     Active Substance: POTASSIUM CHLORIDE
     Indication: PRODUCT USED FOR UNKNOWN INDICATION
     Dosage: 20 MEQ, QD
     Route: 048
  20. PREMARIN [Suspect]
     Active Substance: ESTROGENS, CONJUGATED
     Indication: PRODUCT USED FOR UNKNOWN INDICATION
     Dosage: 1 DF, QD
     Route: 048
  21. BACLOFEN INTRATHECAL [Suspect]
     Active Substance: BACLOFEN
     Dosage: 764.7 UG, QD (INCREASED 10 PERCENT)
     Route: 037
     Dates: start: 20151006
  22. BACLOFEN. [Suspect]
     Active Substance: BACLOFEN
     Indication: MUSCLE SPASMS
  23. TESTOSTERONE CYPIONATE. [Suspect]
     Active Substance: TESTOSTERONE CYPIONATE
     Indication: PRODUCT USED FOR UNKNOWN INDICATION
     Dosage: 200 MG, Q4WK
     Route: 030
  24. AMBIEN [Suspect]
     Active Substance: ZOLPIDEM TARTRATE
     Indication: SLEEP DISORDER
     Dosage: 5 MG, QHS PRN
     Route: 048
  25. ACETAMINOPHEN W/HYDROCODONE [Suspect]
     Active Substance: ACETAMINOPHEN\HYDROCODONE
     Indication: PAIN
     Dosage: 1 DF, Q4H PRN
     Route: 048
  26. MULTI VITAMIN [Suspect]
     Active Substance: VITAMINS
     Indication: PRODUCT USED FOR UNKNOWN INDICATION
     Dosage: 1 DF, QD
     Route: 048
  27. PRILOSEC [Suspect]
     Active Substance: OMEPRAZOLE MAGNESIUM
     Indication: PRODUCT USED FOR UNKNOWN INDICATION
     Dosage: 20 MG, QD
     Route: 048
  28. VESICARE [Suspect]
     Active Substance: SOLIFENACIN SUCCINATE
     Indication: PRODUCT USED FOR UNKNOWN INDICATION
     Dosage: 5 MG, QD
     Route: 048
  29. PREDNISOLONE SODIUM PHOSPHATE. [Suspect]
     Active Substance: PREDNISOLONE SODIUM PHOSPHATE
     Indication: PRODUCT USED FOR UNKNOWN INDICATION
     Route: 065
  30. BACLOFEN INTRATHECAL [Suspect]
     Active Substance: BACLOFEN
     Dosage: 660.9 UG, QD (DECREASED 20 PERCENT)
     Route: 037
     Dates: start: 20151228
  31. PARACETAMOL [Suspect]
     Active Substance: ACETAMINOPHEN
     Indication: HEADACHE
  32. PRIALT [Suspect]
     Active Substance: ZICONOTIDE ACETATE
     Indication: MUSCLE SPASTICITY
     Dosage: 4.007 UG, QD
     Route: 037
  33. LASIX [Suspect]
     Active Substance: FUROSEMIDE
     Indication: PRODUCT USED FOR UNKNOWN INDICATION
     Dosage: 20 MG, QD
     Route: 048

REACTIONS (17)
  - Hypokalaemia [Recovered/Resolved]
  - Discomfort [Recovered/Resolved]
  - Confusional state [Recovered/Resolved]
  - Muscle spasticity [Recovered/Resolved]
  - Pain [Recovered/Resolved]
  - Blood creatine phosphokinase increased [Recovered/Resolved]
  - Delusion [Recovered/Resolved]
  - Sudden onset of sleep [Recovered/Resolved]
  - Hypomagnesaemia [Recovered/Resolved]
  - Hallucination [Recovered/Resolved]
  - Haemodilution [Recovered/Resolved]
  - Overdose [Recovered/Resolved]
  - Anaemia [Recovered/Resolved]
  - Mental status changes [Recovered/Resolved]
  - Rhabdomyolysis [Recovered/Resolved]
  - Hallucinations, mixed [Recovered/Resolved]
  - Muscle spasms [Recovered/Resolved]

NARRATIVE: CASE EVENT DATE: 20151223
